FAERS Safety Report 6219863-2 (Version None)
Quarter: 2009Q2

REPORT INFORMATION
  Report Type: 
  Country: None (occurrence: None)
  Receive Date: 20090609
  Receipt Date: 20090506
  Transmission Date: 20091009
  Serious: No
  Sender: FDA-Public Use
  Company Number: US-BAYER-200921109NA

PATIENT
  Age: 29 Year
  Sex: Female
  Weight: 88 kg

DRUGS (8)
  1. ULTRAVIST 370 [Suspect]
     Indication: COMPUTERISED TOMOGRAM ABDOMEN
     Dosage: TOTAL DAILY DOSE: 120 ML  UNIT DOSE: 500 ML
     Route: 042
     Dates: start: 20090506, end: 20090506
  2. ULTRAVIST 370 [Suspect]
     Route: 048
     Dates: start: 20090506, end: 20090506
  3. AMLODIPINE BESYLATE [Concomitant]
  4. ADVAIR HFA [Concomitant]
  5. HYDROCHLOROTHIAZIDE [Concomitant]
  6. ATENOLOL [Concomitant]
  7. DIGOXIN [Concomitant]
  8. BIRTH CONTROL MEDICATIONS [Concomitant]

REACTIONS (1)
  - LIP SWELLING [None]
